FAERS Safety Report 23060432 (Version 1)
Quarter: 2023Q4

REPORT INFORMATION
  Report Type: Spontaneous
  Country: US (occurrence: None)
  Receive Date: 20231012
  Receipt Date: 20231012
  Transmission Date: 20240109
  Serious: No
  Sender: FDA-Public Use
  Company Number: None

PATIENT
  Sex: Female

DRUGS (2)
  1. DEVICE [Suspect]
     Active Substance: DEVICE
     Indication: Pulmonary arterial hypertension
     Dosage: OTHER FREQUENCY : CONTINUOUS;?
     Route: 058
     Dates: start: 202308
  2. REMODULIN [Suspect]
     Active Substance: TREPROSTINIL
     Route: 058

REACTIONS (4)
  - Nausea [None]
  - Vomiting [None]
  - Flushing [None]
  - Device leakage [None]

NARRATIVE: CASE EVENT DATE: 20231010
